FAERS Safety Report 25117786 (Version 1)
Quarter: 2025Q1

REPORT INFORMATION
  Report Type: Spontaneous
  Country: US (occurrence: None)
  Receive Date: 20250324
  Receipt Date: 20250324
  Transmission Date: 20250408
  Serious: Yes (Disabling)
  Sender: FDA-CTU
  Company Number: None

PATIENT
  Age: 54 Year
  Sex: Female
  Weight: 76.5 kg

DRUGS (4)
  1. OZEMPIC [Suspect]
     Active Substance: SEMAGLUTIDE
     Indication: Diabetes mellitus
     Route: 050
     Dates: start: 20230705, end: 20241031
  2. OZEMPIC [Suspect]
     Active Substance: SEMAGLUTIDE
     Indication: Weight control
  3. METHOTREXATE [Concomitant]
     Active Substance: METHOTREXATE
  4. BIOTIN [Concomitant]
     Active Substance: BIOTIN

REACTIONS (9)
  - Synovial cyst [None]
  - Pain in extremity [None]
  - Dysstasia [None]
  - Pain in extremity [None]
  - Arthralgia [None]
  - Type 2 diabetes mellitus [None]
  - Rheumatoid arthritis [None]
  - Loss of personal independence in daily activities [None]
  - Fear of disease [None]

NARRATIVE: CASE EVENT DATE: 20240610
